FAERS Safety Report 7353344-8 (Version None)
Quarter: 2011Q1

REPORT INFORMATION
  Report Type: 
  Country: None (occurrence: None)
  Receive Date: 20110310
  Receipt Date: 20110310
  Transmission Date: 20110831
  Serious: Yes (Other)
  Sender: FDA-Public Use
  Company Number: None

PATIENT
  Sex: Female
  Weight: 62.5964 kg

DRUGS (1)
  1. BRIMONID OPHTH 0.15% [Suspect]
     Indication: GLAUCOMA
     Dosage: 1 DROP TWICE DAILY

REACTIONS (1)
  - HYPERSENSITIVITY [None]
